FAERS Safety Report 10273127 (Version 8)
Quarter: 2015Q4

REPORT INFORMATION
  Report Type: Report from Study
  Country: US (occurrence: US)
  Receive Date: 20140702
  Receipt Date: 20151229
  Transmission Date: 20160304
  Serious: Yes (Other)
  Sender: FDA-Public Use
  Company Number: US-SA-2014SA083915

PATIENT
  Age: 41 Year
  Sex: Female

DRUGS (1)
  1. AUBAGIO [Suspect]
     Active Substance: TERIFLUNOMIDE
     Indication: MULTIPLE SCLEROSIS
     Route: 048
     Dates: start: 20140504

REACTIONS (11)
  - Malaise [Unknown]
  - Cough [Unknown]
  - Alopecia [Unknown]
  - Food poisoning [Recovering/Resolving]
  - Vomiting [Recovering/Resolving]
  - Rhinorrhoea [Unknown]
  - Diarrhoea [Recovering/Resolving]
  - Nasopharyngitis [Unknown]
  - Sneezing [Unknown]
  - Hypersensitivity [Unknown]
  - Stress [Unknown]
